FAERS Safety Report 5000484-4 (Version None)
Quarter: 2006Q2

REPORT INFORMATION
  Report Type: 
  Country: None (occurrence: None)
  Receive Date: 20060512
  Receipt Date: 20060502
  Transmission Date: 20061013
  Serious: Yes (Hospitalization, Other)
  Sender: FDA-Public Use
  Company Number: PHFR2006GB01589

PATIENT
  Age: 80 Year
  Sex: Female

DRUGS (4)
  1. DICLOFENAC [Suspect]
     Dosage: 75 MG, BID
     Route: 048
     Dates: start: 20000101, end: 20060323
  2. CALCICHEW D3 [Concomitant]
     Indication: OSTEOPOROSIS
     Dosage: 2 UNK, QD
     Route: 048
  3. ALENDRONIC ACID [Concomitant]
     Indication: OSTEOPOROSIS
     Dosage: 70 MG, QW
     Route: 048
  4. TEMAZEPAM [Concomitant]
     Dosage: 20MG/NOCTE
     Route: 048

REACTIONS (11)
  - BLOOD ALBUMIN DECREASED [None]
  - BLOOD ALKALINE PHOSPHATASE INCREASED [None]
  - BLOOD BILIRUBIN INCREASED [None]
  - BLOOD CREATININE INCREASED [None]
  - BLOOD UREA INCREASED [None]
  - CONFUSIONAL STATE [None]
  - DEHYDRATION [None]
  - GAMMA-GLUTAMYLTRANSFERASE INCREASED [None]
  - JAUNDICE [None]
  - RENAL IMPAIRMENT [None]
  - TRANSAMINASES INCREASED [None]
